FAERS Safety Report 26021836 (Version 1)
Quarter: 2025Q4

REPORT INFORMATION
  Report Type: Spontaneous
  Country: US (occurrence: US)
  Receive Date: 20251110
  Receipt Date: 20251110
  Transmission Date: 20260117
  Serious: No
  Sender: SANOFI AVENTIS
  Company Number: US-SANOFI-02707074

PATIENT
  Age: 79 Year
  Sex: Male
  Weight: 95.25 kg

DRUGS (2)
  1. DUPIXENT [Suspect]
     Active Substance: DUPILUMAB
     Indication: Dermatitis atopic
     Dosage: 300 MG, QOW
     Route: 058
  2. ANZUPGO [Concomitant]
     Active Substance: DELGOCITINIB
     Dosage: UNK

REACTIONS (2)
  - Injection site swelling [Unknown]
  - Device issue [Unknown]

NARRATIVE: CASE EVENT DATE: 20251027
